FAERS Safety Report 17699860 (Version 1)
Quarter: 2020Q2

REPORT INFORMATION
  Report Type: Spontaneous
  Country: FR (occurrence: FR)
  Receive Date: 20200423
  Receipt Date: 20200423
  Transmission Date: 20200714
  Serious: Yes (Life-Threatening)
  Sender: FDA-Public Use
  Company Number: NVSC2020FR107825

PATIENT
  Age: 68 Year
  Sex: Female

DRUGS (8)
  1. BISOCE [Interacting]
     Active Substance: BISOPROLOL
     Indication: HYPERTROPHIC CARDIOMYOPATHY
     Dosage: 1 DF, QD
     Route: 048
     Dates: end: 20191212
  2. PRADAXA [Concomitant]
     Active Substance: DABIGATRAN ETEXILATE MESYLATE
     Indication: ATRIAL FIBRILLATION
     Dosage: 2 DF, QD
     Route: 048
     Dates: end: 20191212
  3. AMIODARONE [Concomitant]
     Active Substance: AMIODARONE
     Indication: ATRIAL FIBRILLATION
     Dosage: 1000 MG, QW
     Route: 048
     Dates: end: 20191212
  4. RAMIPRIL. [Interacting]
     Active Substance: RAMIPRIL
     Indication: HYPERTROPHIC CARDIOMYOPATHY
     Dosage: 2.5 MG, QD
     Route: 048
     Dates: end: 20191212
  5. AMOXICILLINE [Interacting]
     Active Substance: AMOXICILLIN
     Indication: ERYSIPELAS
     Dosage: UNK (INCONNUE)
     Route: 048
     Dates: start: 20191112
  6. LASILIX [Interacting]
     Active Substance: FUROSEMIDE
     Indication: HYPERTROPHIC CARDIOMYOPATHY
     Dosage: 80 MG, QD
     Route: 048
     Dates: end: 20191212
  7. ALLOPURINOL. [Suspect]
     Active Substance: ALLOPURINOL
     Indication: GOUT
     Dosage: UNK (INCONNUE)
     Route: 048
     Dates: start: 20191118, end: 20191212
  8. COLCHICINE. [Interacting]
     Active Substance: COLCHICINE
     Indication: GOUT
     Dosage: UNK (INCONNUE)
     Route: 048
     Dates: start: 20191118, end: 20191212

REACTIONS (2)
  - Diarrhoea [Recovered/Resolved]
  - Hypovolaemic shock [Recovered/Resolved]

NARRATIVE: CASE EVENT DATE: 201911
